FAERS Safety Report 7683149-X (Version None)
Quarter: 2011Q3

REPORT INFORMATION
  Report Type: 
  Country: None (occurrence: None)
  Receive Date: 20110812
  Receipt Date: 20110812
  Transmission Date: 20111222
  Serious: No
  Sender: FDA-Public Use
  Company Number: None

PATIENT
  Age: 40 Year
  Sex: Female
  Weight: 67.586 kg

DRUGS (1)
  1. CLOMID [Suspect]

REACTIONS (3)
  - PREGNANCY [None]
  - THYROID NEOPLASM [None]
  - MATERNAL EXPOSURE DURING PREGNANCY [None]
